FAERS Safety Report 13567791 (Version 1)
Quarter: 2017Q2

REPORT INFORMATION
  Report Type: Spontaneous
  Country: US (occurrence: US)
  Receive Date: 20170522
  Receipt Date: 20170522
  Transmission Date: 20170830
  Serious: Yes (Life-Threatening, Hospitalization, Other)
  Sender: FDA-Public Use
  Company Number: None

PATIENT
  Age: 27 Year
  Sex: Female
  Weight: 109.77 kg

DRUGS (4)
  1. PEPTO-BISMOL [Concomitant]
     Active Substance: BISMUTH SUBSALICYLATE
  2. NEXPLANON [Suspect]
     Active Substance: ETONOGESTREL
  3. TYLENOL [Concomitant]
     Active Substance: ACETAMINOPHEN
  4. COLD MEDICINE [Concomitant]
     Active Substance: UNSPECIFIED INGREDIENT

REACTIONS (10)
  - Oral pain [None]
  - Pain in jaw [None]
  - Haemorrhage [None]
  - Loss of personal independence in daily activities [None]
  - Gingival pain [None]
  - Uterine spasm [None]
  - Menorrhagia [None]
  - Infection [None]
  - Dental caries [None]
  - Syncope [None]

NARRATIVE: CASE EVENT DATE: 20170518
